FAERS Safety Report 6305960-X (Version None)
Quarter: 2009Q3

REPORT INFORMATION
  Report Type: 
  Country: None (occurrence: None)
  Receive Date: 20090812
  Receipt Date: 20090804
  Transmission Date: 20100115
  Serious: Yes (Hospitalization)
  Sender: FDA-Public Use
  Company Number: JP-ELI_LILLY_AND_COMPANY-JP200906001588

PATIENT
  Sex: Male
  Weight: 90 kg

DRUGS (13)
  1. DULOXETINE HYDROCHLORIDE [Suspect]
     Indication: DIABETIC NEUROPATHY
     Dosage: 20 MG, DAILY (1/D)
     Route: 048
     Dates: start: 20081016, end: 20081022
  2. DULOXETINE HYDROCHLORIDE [Suspect]
     Dosage: 40 MG, DAILY (1/D)
     Route: 048
     Dates: start: 20081023, end: 20081028
  3. DULOXETINE HYDROCHLORIDE [Suspect]
     Dosage: 60 MG, DAILY (1/D)
     Route: 048
     Dates: start: 20081029, end: 20090418
  4. CYANOCOBALAMIN [Concomitant]
     Indication: DIABETIC NEUROPATHY
     Dosage: 1500 UG, DAILY (1/D)
     Route: 048
  5. EUGLUCON [Concomitant]
     Indication: TYPE 2 DIABETES MELLITUS
     Dosage: 5 MG, DAILY (1/D)
     Route: 048
  6. THEOLONG [Concomitant]
     Indication: ASTHMA
     Dosage: 200 MG, DAILY (1/D)
     Route: 048
  7. SPIROPENT [Concomitant]
     Indication: ASTHMA
     Dosage: 20 UG, DAILY (1/D)
     Route: 048
  8. ZYLORIC [Concomitant]
     Indication: HYPERURICAEMIA
     Dosage: 200 MG, DAILY (1/D)
     Route: 048
  9. OMEPRAL [Concomitant]
     Indication: REFLUX OESOPHAGITIS
     Dosage: 10 MG, DAILY (1/D)
     Route: 048
  10. HARNAL [Concomitant]
     Indication: BENIGN PROSTATIC HYPERPLASIA
     Dosage: 0.2 MG, DAILY (1/D)
     Route: 048
  11. OLMETEC [Concomitant]
     Indication: HYPERTENSION
     Dosage: 10 MG, DAILY (1/D)
     Route: 048
  12. DIBETOS B [Concomitant]
     Indication: TYPE 2 DIABETES MELLITUS
     Route: 048
     Dates: start: 20081111
  13. ACTOS [Concomitant]
     Indication: TYPE 2 DIABETES MELLITUS
     Route: 048
     Dates: start: 20090203

REACTIONS (1)
  - HEPATIC NEOPLASM MALIGNANT [None]
